FAERS Safety Report 5151716-3 (Version None)
Quarter: 2006Q4

REPORT INFORMATION
  Report Type: 
  Country: None (occurrence: None)
  Receive Date: 20061115
  Receipt Date: 20061101
  Transmission Date: 20070319
  Serious: Yes (Other)
  Sender: FDA-Public Use
  Company Number: GB-NOVOPROD-258166

PATIENT
  Sex: Female

DRUGS (3)
  1. LEVEMIR [Suspect]
     Indication: DIABETES MELLITUS INSULIN-DEPENDENT
     Dosage: 8 IU, QD
     Route: 058
     Dates: start: 20061027, end: 20061031
  2. NOVORAPID [Suspect]
     Indication: DIABETES MELLITUS INSULIN-DEPENDENT
     Dosage: 16 IU, QD
     Route: 058
     Dates: start: 20061027, end: 20061031
  3. ENALAPRIL MALEATE [Concomitant]
     Dosage: 2 MG, QD
     Route: 048
     Dates: start: 20020101

REACTIONS (2)
  - NAUSEA [None]
  - TENSION HEADACHE [None]
